FAERS Safety Report 8096960-0 (Version None)
Quarter: 2012Q1

REPORT INFORMATION
  Report Type: 
  Country: None (occurrence: None)
  Receive Date: 20120126
  Receipt Date: 20120117
  Transmission Date: 20120608
  Serious: Yes (Death, Hospitalization)
  Sender: FDA-Public Use
  Company Number: DSA_48940_2012

PATIENT
  Age: 49 Year
  Sex: Male

DRUGS (8)
  1. BUPROPION HCL [Suspect]
     Indication: PRODUCT USED FOR UNKNOWN INDICATION
     Dosage: (DF)
  2. DIPHENHYDRAMINE HCL [Suspect]
     Indication: PRODUCT USED FOR UNKNOWN INDICATION
     Dosage: (DF)
  3. LISINOPRIL [Suspect]
     Indication: PRODUCT USED FOR UNKNOWN INDICATION
     Dosage: (DF)
  4. VASOPRESSOR [Concomitant]
  5. NORADRENALINE /00127501/ [Concomitant]
  6. QUETIAPINE [Suspect]
     Indication: PRODUCT USED FOR UNKNOWN INDICATION
     Dosage: (DF)
  7. INSULIN [Suspect]
     Indication: PRODUCT USED FOR UNKNOWN INDICATION
     Dosage: (80 IU INTRAVENOUS BOLUS), (80-250 IU/H (FOR 9 HOURS) INTRAVENOUS DRIP
     Route: 040
  8. METOCLOPRAMIDE [Suspect]
     Indication: PRODUCT USED FOR UNKNOWN INDICATION
     Dosage: (DF)

REACTIONS (5)
  - CARDIAC ARREST [None]
  - HYPOGLYCAEMIA [None]
  - OVERDOSE [None]
  - HYPOKALAEMIA [None]
  - CARDIOGENIC SHOCK [None]
